FAERS Safety Report 5766020-X (Version None)
Quarter: 2008Q2

REPORT INFORMATION
  Report Type: 
  Country: None (occurrence: None)
  Receive Date: 20080611
  Receipt Date: 20080603
  Transmission Date: 20081010
  Serious: Yes (Death)
  Sender: FDA-Public Use
  Company Number: US-GENENTECH-261116

PATIENT
  Sex: Male
  Weight: 60.317 kg

DRUGS (18)
  1. BEVACIZUMAB [Suspect]
     Indication: NON-SMALL CELL LUNG CANCER
     Dosage: 865 MG, Q3W
     Route: 042
     Dates: start: 20080422
  2. TAXOL [Suspect]
     Indication: NON-SMALL CELL LUNG CANCER
     Dosage: 330 MG, Q3W
     Route: 042
     Dates: start: 20080422
  3. CARBOPLATIN [Suspect]
     Indication: NON-SMALL CELL LUNG CANCER
     Dosage: 525 MG, Q3W
     Route: 042
     Dates: start: 20080422
  4. ZOFRAN [Concomitant]
     Indication: DRUG USE FOR UNKNOWN INDICATION
     Dosage: 32 MG, UNK
     Route: 042
  5. DEXAMETHASONE TAB [Concomitant]
     Indication: DRUG USE FOR UNKNOWN INDICATION
     Dosage: 4 MG, QD
     Route: 048
  6. ENDOCET [Concomitant]
     Indication: PAIN
     Dosage: 7.5 MG, PRN
     Route: 048
  7. ENDOCET [Concomitant]
     Dosage: 325 MG, PRN
     Route: 048
  8. AVAPRO [Concomitant]
     Indication: DRUG USE FOR UNKNOWN INDICATION
     Dosage: 150 MG, QD
     Route: 048
  9. ATIVAN [Concomitant]
     Indication: DRUG USE FOR UNKNOWN INDICATION
     Dosage: 1 MG, BID
     Route: 048
  10. PROMETHAZINE [Concomitant]
     Indication: DRUG USE FOR UNKNOWN INDICATION
     Dosage: 25 MG, PRN
     Route: 048
  11. COMPAZINE [Concomitant]
     Indication: NAUSEA
     Dosage: 10 MG, PRN
     Route: 048
  12. TUSSIONEX (UNITED STATES) [Concomitant]
     Indication: COUGH
     Dosage: 1 TSP, PRN
     Route: 048
  13. AMBIEN [Concomitant]
     Indication: DRUG USE FOR UNKNOWN INDICATION
     Dosage: 6.25 MG, QHS
     Route: 048
  14. DECADRON [Concomitant]
     Indication: PREMEDICATION
     Dosage: 4 MG, UNK
  15. DIGOXIN [Concomitant]
     Indication: DRUG USE FOR UNKNOWN INDICATION
     Dosage: 0.125 MG, QD
  16. DIGOXIN [Concomitant]
     Dosage: 0.25 MG, QD
  17. KAYEXALATE [Concomitant]
     Indication: DRUG USE FOR UNKNOWN INDICATION
     Dosage: 30 G, UNK
  18. STEROID (NAME UNKNOWN) [Concomitant]
     Indication: DRUG USE FOR UNKNOWN INDICATION
     Dosage: UNK UNK, UNKNOWN
     Route: 065

REACTIONS (1)
  - LUNG CANCER METASTATIC [None]
